FAERS Safety Report 5022362-7 (Version None)
Quarter: 2006Q2

REPORT INFORMATION
  Report Type: 
  Country: None (occurrence: None)
  Receive Date: 20060502
  Receipt Date: 20060319
  Transmission Date: 20061013
  Serious: No
  Sender: FDA-Public Use
  Company Number: CLOF-10214

PATIENT
  Age: 14 Year
  Sex: Female
  Weight: 79 kg

DRUGS (3)
  1. CLOLAR [Suspect]
     Dosage: 36 MG QD X 5 IV
     Route: 042
     Dates: start: 20060221, end: 20060225
  2. CYTOXAN [Suspect]
     Dates: start: 20060221, end: 20060225
  3. GENTAMICIN [Concomitant]

REACTIONS (4)
  - BLOOD CALCIUM DECREASED [None]
  - BLOOD CREATININE INCREASED [None]
  - BLOOD PHOSPHORUS DECREASED [None]
  - BLOOD POTASSIUM DECREASED [None]
